FAERS Safety Report 7554516-X (Version None)
Quarter: 2011Q2

REPORT INFORMATION
  Report Type: 
  Country: None (occurrence: None)
  Receive Date: 20110617
  Receipt Date: 20110610
  Transmission Date: 20111010
  Serious: Yes (Other)
  Sender: FDA-Public Use
  Company Number: B0726471A

PATIENT
  Age: 55 Year
  Sex: Female

DRUGS (1)
  1. AVANDIA [Suspect]
     Dosage: 8MG PER DAY
     Route: 048
     Dates: start: 20051001, end: 20070801

REACTIONS (3)
  - RENAL FAILURE CHRONIC [None]
  - MYOCARDIAL INFARCTION [None]
  - MACULAR OEDEMA [None]
